FAERS Safety Report 12439654 (Version 1)
Quarter: 2016Q2

REPORT INFORMATION
  Report Type: Spontaneous
  Country: US (occurrence: US)
  Receive Date: 20160606
  Receipt Date: 20160606
  Transmission Date: 20160815
  Serious: No
  Sender: FDA-Public Use
  Company Number: US-TEVA-661585USA

PATIENT
  Age: 5 Decade
  Sex: Male

DRUGS (2)
  1. AMRIX [Suspect]
     Active Substance: CYCLOBENZAPRINE HYDROCHLORIDE
     Route: 065
  2. ARIMIDEX [Suspect]
     Active Substance: ANASTROZOLE
     Dosage: 1 MILLIGRAM DAILY;
     Route: 065

REACTIONS (6)
  - Wrong drug administered [Unknown]
  - Chills [Unknown]
  - Myalgia [Unknown]
  - Adverse event [Unknown]
  - Drug dispensing error [Unknown]
  - Dizziness [Unknown]
